FAERS Safety Report 8620724-X (Version None)
Quarter: 2012Q3

REPORT INFORMATION
  Report Type: 
  Country: None (occurrence: None)
  Receive Date: 20120816
  Receipt Date: 20120816
  Transmission Date: 20120928
  Serious: Yes (Hospitalization)
  Sender: FDA-Public Use
  Company Number: None

PATIENT
  Sex: Male
  Weight: 41.7 kg

DRUGS (11)
  1. GEMCITABINE HYDROCHLORIDE [Concomitant]
  2. LORTAB PRN [Concomitant]
  3. ZOFRAN [Concomitant]
  4. NEUTRAPHOS [Concomitant]
  5. IRINOTECAN HYDROCHLORIDE [Concomitant]
  6. BACTRIM [Concomitant]
  7. PROLEUKIN [Suspect]
     Indication: NEUROBLASTOMA
     Dosage: 4.5 MIU ON DAYS 0-4
     Dates: start: 20120723, end: 20120727
  8. OXYCONTIN [Concomitant]
  9. CITRACAL D [Concomitant]
  10. ZOLEDRONIC ACID [Suspect]
     Indication: NEUROBLASTOMA
     Dosage: 4 MG, IV ON DAY 0
     Dates: start: 20120723
  11. OXALIPLATIN [Concomitant]

REACTIONS (4)
  - VOMITING [None]
  - BONE PAIN [None]
  - PANCREATITIS [None]
  - ABDOMINAL PAIN [None]
